FAERS Safety Report 10507804 (Version 1)
Quarter: 2014Q3

REPORT INFORMATION
  Report Type: Spontaneous
  Country: US (occurrence: None)
  Receive Date: 20140915
  Receipt Date: 20140915
  Transmission Date: 20150326
  Serious: Yes (Other)
  Sender: FDA-Public Use
  Company Number: 2014-US-004354

PATIENT
  Age: 55 Year
  Sex: Female

DRUGS (2)
  1. XYREM [Suspect]
     Active Substance: SODIUM OXYBATE
     Indication: NARCOLEPSY
     Route: 048
     Dates: start: 201304, end: 201304
  2. XYREM [Suspect]
     Active Substance: SODIUM OXYBATE
     Indication: CATAPLEXY
     Route: 048
     Dates: start: 201304, end: 201304

REACTIONS (11)
  - Gait disturbance [None]
  - Fatigue [None]
  - Therapeutic response decreased [None]
  - Insomnia [None]
  - Fall [None]
  - Feeling abnormal [None]
  - Sleep apnoea syndrome [None]
  - Pollakiuria [None]
  - Head injury [None]
  - Appetite disorder [None]
  - Stress [None]

NARRATIVE: CASE EVENT DATE: 201404
